FAERS Safety Report 9646156 (Version 1)
Quarter: 2013Q4

REPORT INFORMATION
  Report Type: Spontaneous
  Country: US (occurrence: US)
  Receive Date: 20131025
  Receipt Date: 20131025
  Transmission Date: 20140711
  Serious: Yes (Other)
  Sender: FDA-Public Use
  Company Number: US-ASTRAZENECA-2013SE75855

PATIENT
  Age: 75 Year
  Sex: Female
  Weight: 106.6 kg

DRUGS (12)
  1. NEXIUM [Suspect]
     Indication: GASTROOESOPHAGEAL REFLUX DISEASE
     Route: 048
     Dates: start: 2008, end: 20131013
  2. AMBIEN [Concomitant]
     Indication: SLEEP DISORDER
     Dosage: 5 OR 10 MG HS
  3. COUMADIN [Concomitant]
     Indication: BLOOD DISORDER
     Dosage: 1 MG 5 DAYS A WEEK
  4. COUMADIN [Concomitant]
     Indication: BLOOD DISORDER
     Dosage: .5 MG 2 DAYS A WEEK
  5. CYMBALTA [Concomitant]
     Indication: BACK PAIN
  6. CYMBALTA [Concomitant]
     Indication: DEPRESSION
  7. CYMBALTA [Concomitant]
     Indication: ARTHRALGIA
  8. LASIX [Concomitant]
     Indication: DIURETIC THERAPY
  9. LORTAB [Concomitant]
     Indication: PAIN
     Dosage: 7.5 500 MG PRN
  10. AMIODARONE [Concomitant]
  11. COREG [Concomitant]
  12. FENTANYL PATCH [Concomitant]
     Indication: BACK PAIN

REACTIONS (7)
  - Cardiac failure congestive [Unknown]
  - Atrial fibrillation [Unknown]
  - Gastrooesophageal reflux disease [Unknown]
  - Back pain [Unknown]
  - Depression [Unknown]
  - Arthralgia [Unknown]
  - Intentional drug misuse [Unknown]
